FAERS Safety Report 21526710 (Version 1)
Quarter: 2022Q4

REPORT INFORMATION
  Report Type: Other
  Country: US (occurrence: None)
  Receive Date: 20221031
  Receipt Date: 20221031
  Transmission Date: 20230113
  Serious: Yes (Other)
  Sender: FDA-Public Use
  Company Number: US-ROCHE-3209293

PATIENT
  Age: 14 Year
  Sex: Female

DRUGS (2)
  1. NUTROPIN [Suspect]
     Active Substance: SOMATROPIN
     Indication: Short stature
     Route: 058
  2. NUTROPIN [Suspect]
     Active Substance: SOMATROPIN

REACTIONS (4)
  - Depression [Unknown]
  - Chest pain [Unknown]
  - Bone pain [Unknown]
  - Suicidal ideation [Unknown]
